FAERS Safety Report 23871024 (Version 1)
Quarter: 2024Q2

REPORT INFORMATION
  Report Type: Spontaneous
  Country: US (occurrence: US)
  Receive Date: 20240518
  Receipt Date: 20240518
  Transmission Date: 20240716
  Serious: Yes (Hospitalization, Disabling, Other)
  Sender: FDA-Public Use
  Company Number: US-AMGEN-USASP2024096863

PATIENT
  Age: 71 Year
  Sex: Female

DRUGS (21)
  1. BEVACIZUMAB [Suspect]
     Active Substance: BEVACIZUMAB
     Indication: Product used for unknown indication
     Dosage: UNK
     Route: 065
  2. LONSURF [Suspect]
     Active Substance: TIPIRACIL HYDROCHLORIDE\TRIFLURIDINE
     Indication: Rectal cancer
     Dosage: 60 MILLIGRAM, BID (ON DAYS 1-5 AND 8-12 OF EACH 28-DAY CYCLE)
     Route: 048
     Dates: start: 20230428, end: 20240214
  3. LONSURF [Suspect]
     Active Substance: TIPIRACIL HYDROCHLORIDE\TRIFLURIDINE
     Dosage: 100 MILLIGRAM, BID (3 TABLETS IN THE MORNING AND 2 TABLETS IN THE EVENING, ON DAYS 1-5 AND 8-12 OF E
     Route: 048
  4. PANITUMUMAB [Suspect]
     Active Substance: PANITUMUMAB
     Indication: Product used for unknown indication
     Dosage: UNK UNK, QMO
     Route: 065
     Dates: start: 20230601, end: 20240214
  5. HEPARIN [Suspect]
     Active Substance: HEPARIN SODIUM
     Indication: Product used for unknown indication
     Route: 042
  6. PANTOPRAZOLE [Suspect]
     Active Substance: PANTOPRAZOLE
     Indication: Product used for unknown indication
     Dosage: 40 MILLIGRAM
     Route: 065
     Dates: end: 2023
  7. TYLENOL [Concomitant]
     Active Substance: ACETAMINOPHEN
     Indication: Product used for unknown indication
     Dosage: 650 MILLIGRAM, Q4H
     Route: 048
  8. MULTIVITAMIN ACTIVE WOMAN [Concomitant]
     Indication: Product used for unknown indication
     Dosage: TAKE 2 EACH BY MOUTH DAILY
     Route: 048
  9. VENTOLIN HFA [Concomitant]
     Active Substance: ALBUTEROL SULFATE
     Indication: Product used for unknown indication
  10. DOXYCYCLINE HYCLATE [Concomitant]
     Active Substance: DOXYCYCLINE HYCLATE
     Indication: Product used for unknown indication
  11. MAGNESIUM OXIDE [Concomitant]
     Active Substance: MAGNESIUM OXIDE
     Indication: Product used for unknown indication
     Dosage: 600 MILLIGRAM, QD
     Route: 048
  12. ZOFRAN [Concomitant]
     Active Substance: ONDANSETRON HYDROCHLORIDE
     Indication: Nausea
     Dosage: 8 MILLIGRAM, Q8H
     Route: 048
  13. PREDNISONE [Concomitant]
     Active Substance: PREDNISONE
     Indication: Product used for unknown indication
  14. ATIVAN [Concomitant]
     Active Substance: LORAZEPAM
     Indication: Nausea
     Dosage: 0.25 MILLIGRAM, Q4H
     Route: 048
  15. ATIVAN [Concomitant]
     Active Substance: LORAZEPAM
     Indication: Anxiety
  16. ATIVAN [Concomitant]
     Active Substance: LORAZEPAM
     Indication: Insomnia
  17. COMPAZINE [Concomitant]
     Active Substance: PROCHLORPERAZINE MALEATE
     Indication: Product used for unknown indication
     Dosage: 10 MILLIGRAM, Q6H
     Route: 048
  18. CRANBERRY [Concomitant]
     Active Substance: CRANBERRY
     Dosage: 4200 MILLIGRAM, Q8H
     Route: 048
  19. SIMETHICONE (DIMETHICONE) [Concomitant]
     Active Substance: DIMETHICONE
     Dosage: 80 MILLIGRAM, Q6H
     Route: 048
  20. METAMUCIL [Concomitant]
     Active Substance: PLANTAGO SEED
     Dosage: UNK UNK, QD
     Route: 048
  21. CALTRATE WITH VITAMIN D [Concomitant]
     Active Substance: CALCIUM CARBONATE\CHOLECALCIFEROL
     Dosage: 600 MILLIGRAM, Q8H

REACTIONS (27)
  - Kidney infection [Unknown]
  - Pulmonary artery thrombosis [Unknown]
  - Haematuria [Unknown]
  - Atelectasis [Unknown]
  - Hypotension [Unknown]
  - Hydronephrosis [Unknown]
  - Alopecia [Not Recovered/Not Resolved]
  - Weight decreased [Recovering/Resolving]
  - Decreased appetite [Recovering/Resolving]
  - Deep vein thrombosis [Unknown]
  - Febrile neutropenia [Unknown]
  - Hypomagnesaemia [Unknown]
  - Neuropathy peripheral [Unknown]
  - Contrast media allergy [Unknown]
  - Procedural pain [Unknown]
  - Hyperaesthesia [Unknown]
  - Oedema [Unknown]
  - Muscle strain [Unknown]
  - Dizziness [Unknown]
  - Ageusia [Unknown]
  - Blood calcium decreased [Unknown]
  - Gastrointestinal disorder [Unknown]
  - Diarrhoea [Recovering/Resolving]
  - Fatigue [Not Recovered/Not Resolved]
  - Nausea [Recovering/Resolving]
  - Hypertension [Unknown]
  - Epistaxis [Unknown]

NARRATIVE: CASE EVENT DATE: 20230519
